FAERS Safety Report 5655580-5 (Version None)
Quarter: 2008Q1

REPORT INFORMATION
  Report Type: 
  Country: None (occurrence: None)
  Receive Date: 20080212
  Receipt Date: 20070720
  Transmission Date: 20080703
  Serious: Yes (Other)
  Sender: FDA-Public Use
  Company Number: MC200700529

PATIENT
  Age: 65 Year
  Sex: Male
  Weight: 81.7 kg

DRUGS (4)
  1. ANGIOMAX [Suspect]
     Indication: PERCUTANEOUS CORONARY INTERVENTION
     Dosage: 12 ML, BOLUS, IV BOLUS ; BOLUS, IV BOLUS
     Route: 040
     Dates: start: 20070720, end: 20070720
  2. ANGIOMAX [Suspect]
     Indication: PERCUTANEOUS CORONARY INTERVENTION
     Dosage: 12 ML, BOLUS, IV BOLUS ; BOLUS, IV BOLUS
     Route: 040
     Dates: start: 20070720, end: 20070720
  3. ANGIOMAX [Suspect]
     Dosage: 28 ML, HR, INTRAVENOUS
     Route: 042
     Dates: start: 20070701, end: 20070701
  4. REOPRO [Suspect]
     Indication: PERCUTANEOUS CORONARY INTERVENTION
     Dates: start: 20070701, end: 20070701

REACTIONS (3)
  - COAGULATION TIME ABNORMAL [None]
  - HAEMORRHAGE [None]
  - THROMBOSIS [None]
